FAERS Safety Report 16929697 (Version 1)
Quarter: 2019Q4

REPORT INFORMATION
  Report Type: Spontaneous
  Country: US (occurrence: US)
  Receive Date: 20191017
  Receipt Date: 20191017
  Transmission Date: 20200122
  Serious: Yes (Other)
  Sender: FDA-Public Use
  Company Number: US-MYLANLABS-2019M1094686

PATIENT
  Sex: Female
  Weight: 79 kg

DRUGS (1)
  1. SCOPOLAMINE TRANSDERMAL SYSTEM [Suspect]
     Active Substance: SCOPOLAMINE
     Indication: MOTION SICKNESS
     Dosage: 1 DOSAGE FORM, QD (DAILY TO AND FROM ON PLANE)
     Route: 062
     Dates: start: 2019

REACTIONS (4)
  - Vision blurred [Recovering/Resolving]
  - Product adhesion issue [Recovering/Resolving]
  - Mydriasis [Recovering/Resolving]
  - Eye pain [Recovering/Resolving]

NARRATIVE: CASE EVENT DATE: 2019
